FAERS Safety Report 12309880 (Version 1)
Quarter: 2016Q2

REPORT INFORMATION
  Report Type: Spontaneous
  Country: US (occurrence: US)
  Receive Date: 20160427
  Receipt Date: 20160427
  Transmission Date: 20160815
  Serious: No
  Sender: FDA-Public Use
  Company Number: US-WATSON-2015-15699

PATIENT
  Age: 53 Year
  Sex: Female

DRUGS (2)
  1. MORPHINE SULFATE (WATSON LABORATORIES) [Concomitant]
     Active Substance: MORPHINE SULFATE
     Indication: BACK PAIN
  2. CARISOPRODOL (WATSON LABORATORIES) [Suspect]
     Active Substance: CARISOPRODOL
     Indication: MUSCLE SPASTICITY
     Dosage: 350 MG, PRN
     Route: 048

REACTIONS (2)
  - Pain [None]
  - Drug ineffective [None]
